FAERS Safety Report 10091722 (Version 1)
Quarter: 2014Q2

REPORT INFORMATION
  Report Type: Spontaneous
  Country: US (occurrence: US)
  Receive Date: 20140421
  Receipt Date: 20140421
  Transmission Date: 20141212
  Serious: No
  Sender: FDA-Public Use
  Company Number: US-PURDUE-USA-2003-0005611

PATIENT
  Sex: Male

DRUGS (2)
  1. OXYFAST CONCENTRATE 20 MG/ML [Suspect]
     Indication: PRODUCT USED FOR UNKNOWN INDICATION
     Dosage: UNK
     Route: 048
  2. UNKNOWN [Concomitant]

REACTIONS (1)
  - Drug withdrawal syndrome [None]
